FAERS Safety Report 6257036-8 (Version None)
Quarter: 2009Q3

REPORT INFORMATION
  Report Type: 
  Country: None (occurrence: None)
  Receive Date: 20090706
  Receipt Date: 20090624
  Transmission Date: 20100115
  Serious: Yes (Other)
  Sender: FDA-Public Use
  Company Number: A0794697A

PATIENT
  Sex: Female

DRUGS (3)
  1. LAMICTAL [Suspect]
     Indication: CONVULSION
     Route: 065
  2. BROMOCRIPTINE [Suspect]
     Indication: HORMONE LEVEL ABNORMAL
     Route: 065
  3. DEXAMETHASONE [Suspect]
     Indication: HORMONE LEVEL ABNORMAL
     Route: 065

REACTIONS (2)
  - CONVULSION [None]
  - DRUG INTERACTION [None]
